FAERS Safety Report 14419955 (Version 1)
Quarter: 2018Q1

REPORT INFORMATION
  Report Type: Spontaneous
  Country: US (occurrence: US)
  Receive Date: 20180122
  Receipt Date: 20180122
  Transmission Date: 20180509
  Serious: Yes (Hospitalization)
  Sender: FDA-Public Use
  Company Number: US-DSJP-DSU-2017-140709

PATIENT

DRUGS (1)
  1. BENICAR HCT [Suspect]
     Active Substance: HYDROCHLOROTHIAZIDE\OLMESARTAN MEDOXOMIL
     Indication: PRODUCT USED FOR UNKNOWN INDICATION
     Dosage: 40/25, QD
     Route: 048
     Dates: start: 20070101, end: 20100122

REACTIONS (9)
  - Gastrooesophageal reflux disease [Unknown]
  - Upper gastrointestinal haemorrhage [Unknown]
  - Oesophageal candidiasis [Unknown]
  - Coeliac disease [Unknown]
  - Acute kidney injury [Unknown]
  - Diverticulum [Unknown]
  - Clostridium difficile colitis [Unknown]
  - Haematemesis [Unknown]
  - Sprue-like enteropathy [Recovering/Resolving]

NARRATIVE: CASE EVENT DATE: 20080101
